FAERS Safety Report 6509066-6 (Version None)
Quarter: 2009Q4

REPORT INFORMATION
  Report Type: 
  Country: None (occurrence: None)
  Receive Date: 20091221
  Receipt Date: 20091221
  Transmission Date: 20100525
  Serious: Yes (Other)
  Sender: FDA-Public Use
  Company Number: BR-ABBOTT-09P-020-0614614-00

PATIENT
  Sex: Male
  Weight: 75 kg

DRUGS (2)
  1. DEPAKOTE [Suspect]
     Indication: MIGRAINE
     Dosage: 4 TABLETS AT ONCE
     Route: 048
  2. DEPAKOTE [Suspect]
     Dosage: 6 TABLETS AT ONCE
     Route: 048
     Dates: start: 20091210

REACTIONS (7)
  - FEAR [None]
  - ILL-DEFINED DISORDER [None]
  - INTENTIONAL OVERDOSE [None]
  - SOMNOLENCE [None]
  - SPEECH DISORDER [None]
  - SUICIDE ATTEMPT [None]
  - URINARY INCONTINENCE [None]
